FAERS Safety Report 9475172 (Version 1)
Quarter: 2013Q3

REPORT INFORMATION
  Report Type: Spontaneous
  Country: GB (occurrence: GB)
  Receive Date: 20130824
  Receipt Date: 20130824
  Transmission Date: 20140515
  Serious: Yes (Other)
  Sender: FDA-Public Use
  Company Number: PHHY2013GB089818

PATIENT
  Age: 49 Year
  Sex: Female
  Weight: 66.5 kg

DRUGS (4)
  1. METRONIDAZOLE [Suspect]
     Dosage: UNK
     Dates: start: 20130802
  2. NEXPLANON [Concomitant]
     Dosage: 68 MG, UNK
     Route: 059
     Dates: start: 20110726
  3. AMOXICILLIN [Concomitant]
     Dates: start: 20130513, end: 20130520
  4. BENZYDAMINE HYDROCHLORIDE [Concomitant]
     Dates: start: 20130513, end: 20130520

REACTIONS (3)
  - Joint swelling [Unknown]
  - Vomiting [Unknown]
  - Diarrhoea [Unknown]
